FAERS Safety Report 15393991 (Version 1)
Quarter: 2018Q3

REPORT INFORMATION
  Report Type: Spontaneous
  Country: US (occurrence: US)
  Receive Date: 20180911
  Receipt Date: 20180911
  Transmission Date: 20181010
  Serious: Yes (Hospitalization)
  Sender: FDA-Public Use
  Company Number: None

PATIENT
  Age: 57 Year
  Sex: Female
  Weight: 51.8 kg

DRUGS (5)
  1. CISPLATIN. [Suspect]
     Active Substance: CISPLATIN
     Indication: PLATELET COUNT DECREASED
     Dates: end: 20180814
  2. CISPLATIN. [Suspect]
     Active Substance: CISPLATIN
     Indication: URINARY TRACT INFECTION
     Dates: end: 20180814
  3. CISPLATIN. [Suspect]
     Active Substance: CISPLATIN
     Indication: VOMITING
     Dates: end: 20180814
  4. CISPLATIN. [Suspect]
     Active Substance: CISPLATIN
     Indication: WHITE BLOOD CELL COUNT DECREASED
     Dates: end: 20180814
  5. CISPLATIN. [Suspect]
     Active Substance: CISPLATIN
     Indication: NAUSEA
     Dates: end: 20180814

REACTIONS (14)
  - Nausea [None]
  - Incontinence [None]
  - White blood cell count decreased [None]
  - Vomiting [None]
  - Platelet count decreased [None]
  - Diarrhoea [None]
  - Haemoglobin decreased [None]
  - Pyrexia [None]
  - Febrile neutropenia [None]
  - Infection [None]
  - Sinus tachycardia [None]
  - Hypotension [None]
  - Asthenia [None]
  - Urinary tract infection [None]

NARRATIVE: CASE EVENT DATE: 20180821
